FAERS Safety Report 8485398-X (Version None)
Quarter: 2012Q2

REPORT INFORMATION
  Report Type: 
  Country: None (occurrence: None)
  Receive Date: 20120627
  Receipt Date: 20120627
  Transmission Date: 20120825
  Serious: Yes (Hospitalization, Other)
  Sender: FDA-Public Use
  Company Number: None

PATIENT
  Sex: Male
  Weight: 91 kg

DRUGS (1)
  1. AXITINIB UNKNOWN PFIZER [Suspect]
     Indication: METASTATIC RENAL CELL CARCINOMA
     Dates: start: 20120601

REACTIONS (1)
  - INTESTINAL PERFORATION [None]
